FAERS Safety Report 8702685 (Version 2)
Quarter: 2012Q4

REPORT INFORMATION
  Report Type: 
  Country: US (occurrence: US)
  Receive Date: 20120803
  Receipt Date: 20121010
  Transmission Date: 20130627
  Serious: Yes (Death, Hospitalization, Other)
  Sender: FDA-Public Use
  Company Number: US-MPIJNJ-2012-01394

PATIENT
  Age: 61 None

DRUGS (3)
  1. VELCADE [Suspect]
     Indication: MULTIPLE MYELOMA
     Dosage: 2 mg, Cyclic
     Route: 042
     Dates: start: 20110908, end: 20111005
  2. CYTOXAN [Suspect]
     Indication: MULTIPLE MYELOMA
     Dosage: 1620 mg, Cyclic
     Route: 042
     Dates: start: 20110908, end: 20110908
  3. DEXAMETHASONE [Suspect]
     Indication: MULTIPLE MYELOMA
     Dosage: 40 mg, Cyclic
     Route: 048
     Dates: start: 20110908, end: 20111013

REACTIONS (2)
  - Plasma cell myeloma [Fatal]
  - Back pain [Fatal]
